FAERS Safety Report 5353084-0 (Version None)
Quarter: 2007Q2

REPORT INFORMATION
  Report Type: 
  Country: None (occurrence: None)
  Receive Date: 20070611
  Receipt Date: 20070530
  Transmission Date: 20071010
  Serious: Yes (Other)
  Sender: FDA-Public Use
  Company Number: US-PFIZER INC-2007045340

PATIENT
  Sex: Female

DRUGS (1)
  1. CHANTIX [Suspect]

REACTIONS (5)
  - ABASIA [None]
  - DYSGEUSIA [None]
  - NERVOUSNESS [None]
  - PAIN [None]
  - VOMITING [None]
